FAERS Safety Report 6177314-0 (Version None)
Quarter: 2009Q2

REPORT INFORMATION
  Report Type: 
  Country: None (occurrence: None)
  Receive Date: 20090504
  Receipt Date: 20090424
  Transmission Date: 20091009
  Serious: Yes (Hospitalization)
  Sender: FDA-Public Use
  Company Number: US-BIOGENIDEC-2006BI003879

PATIENT
  Age: 56 Year
  Sex: Female

DRUGS (2)
  1. AVONEX [Suspect]
     Indication: MULTIPLE SCLEROSIS
     Route: 030
     Dates: start: 20010120, end: 20020104
  2. AVONEX [Suspect]
     Route: 030
     Dates: start: 20030101, end: 20090301

REACTIONS (1)
  - TRIGEMINAL NEURALGIA [None]
